FAERS Safety Report 19889987 (Version 1)
Quarter: 2021Q3

REPORT INFORMATION
  Report Type: Spontaneous
  Country: GB (occurrence: GB)
  Receive Date: 20210927
  Receipt Date: 20210927
  Transmission Date: 20211014
  Serious: Yes (Life-Threatening)
  Sender: FDA-Public Use
  Company Number: GB-TEVA-2021-GB-1957168

PATIENT
  Age: 73 Year
  Sex: Female
  Weight: 66 kg

DRUGS (7)
  1. MONTELUKAST SODIUM. [Concomitant]
     Active Substance: MONTELUKAST SODIUM
  2. ZOPICLONE [Concomitant]
     Active Substance: ZOPICLONE
  3. OCTASA [Concomitant]
     Active Substance: MESALAMINE
  4. LANSOPRAZOL [Concomitant]
     Active Substance: LANSOPRAZOLE
  5. ONDANSETRON HYDROCHLORIDE. [Suspect]
     Active Substance: ONDANSETRON HYDROCHLORIDE
     Indication: PROPHYLAXIS OF NAUSEA AND VOMITING
     Dosage: UNKNOWN
     Route: 065
     Dates: start: 20210316, end: 20210316
  6. BISOPROLOL FUMARATE. [Concomitant]
     Active Substance: BISOPROLOL FUMARATE
  7. APIXABAN [Concomitant]
     Active Substance: APIXABAN

REACTIONS (1)
  - Anaphylactic reaction [Recovered/Resolved]

NARRATIVE: CASE EVENT DATE: 20210316
